FAERS Safety Report 4999968-4 (Version None)
Quarter: 2006Q2

REPORT INFORMATION
  Report Type: 
  Country: None (occurrence: None)
  Receive Date: 20060511
  Receipt Date: 20060504
  Transmission Date: 20061013
  Serious: Yes (Life-Threatening, Hospitalization, Disabling, Other)
  Sender: FDA-Public Use
  Company Number: US-GLAXOSMITHKLINE-A0604413A

PATIENT
  Sex: Male

DRUGS (2)
  1. BEXXAR [Suspect]
     Indication: NON-HODGKIN'S LYMPHOMA
     Dosage: 94.9MCI SINGLE DOSE
     Route: 042
     Dates: start: 20060301, end: 20060301
  2. IRRADIATION [Suspect]
     Dosage: 3200CGY PER DAY

REACTIONS (6)
  - ACUTE RESPIRATORY DISTRESS SYNDROME [None]
  - DYSPNOEA [None]
  - EJECTION FRACTION DECREASED [None]
  - MEDIASTINAL DISORDER [None]
  - NEUTROPHIL COUNT DECREASED [None]
  - PNEUMONIA [None]
